FAERS Safety Report 16652495 (Version 2)
Quarter: 2019Q3

REPORT INFORMATION
  Report Type: Spontaneous
  Country: US (occurrence: US)
  Receive Date: 20190731
  Receipt Date: 20190814
  Transmission Date: 20191004
  Serious: No
  Sender: FDA-Public Use
  Company Number: US-GLAXOSMITHKLINE-US2019135265

PATIENT
  Age: 77 Year
  Sex: Male

DRUGS (2)
  1. ABREVA [Suspect]
     Active Substance: DOCOSANOL
     Indication: ORAL HERPES
     Dosage: 3 TO 4 TIMES
     Dates: start: 20190712, end: 20190721
  2. ABREVA [Suspect]
     Active Substance: DOCOSANOL
     Dosage: 3 TO 4 TIMES
     Dates: start: 20190712, end: 20190721

REACTIONS (1)
  - Inappropriate schedule of product administration [Unknown]

NARRATIVE: CASE EVENT DATE: 20190712
